FAERS Safety Report 4924524-3 (Version None)
Quarter: 2006Q1

REPORT INFORMATION
  Report Type: 
  Country: None (occurrence: None)
  Receive Date: 20060222
  Receipt Date: 20060207
  Transmission Date: 20060701
  Serious: Yes (Life-Threatening, Hospitalization)
  Sender: FDA-Public Use
  Company Number: 2004-120013-NL

PATIENT
  Age: 55 Year
  Sex: Female

DRUGS (2)
  1. MIRTAZAPINE [Suspect]
     Indication: DEPRESSION
     Dosage: 30 MG
     Dates: start: 20040119, end: 20040204
  2. ALPRAZOLAM [Concomitant]

REACTIONS (1)
  - SUICIDE ATTEMPT [None]
